FAERS Safety Report 4496116-4 (Version None)
Quarter: 2004Q4

REPORT INFORMATION
  Report Type: 
  Country: None (occurrence: None)
  Receive Date: 20041108
  Receipt Date: 20041029
  Transmission Date: 20050328
  Serious: Yes (Hospitalization, Other)
  Sender: FDA-Public Use
  Company Number: US-MERCK-0411USA00049

PATIENT
  Age: 58 Year
  Sex: Female

DRUGS (8)
  1. VIOXX [Suspect]
     Indication: ARTHRITIS
     Route: 048
     Dates: start: 20000101, end: 20041001
  2. LIPITOR [Concomitant]
     Route: 065
  3. PLAVIX [Concomitant]
     Route: 065
  4. DETROL LA [Concomitant]
     Route: 065
  5. VAGIFEM [Concomitant]
     Route: 065
  6. LIBRIUM [Concomitant]
     Route: 065
  7. ELAVIL [Concomitant]
     Route: 048
  8. GLUCOSAMINE [Concomitant]
     Route: 065

REACTIONS (3)
  - BLINDNESS UNILATERAL [None]
  - CEREBROVASCULAR ACCIDENT [None]
  - TRANSIENT ISCHAEMIC ATTACK [None]
